FAERS Safety Report 7194148-9 (Version None)
Quarter: 2010Q4

REPORT INFORMATION
  Report Type: 
  Country: None (occurrence: None)
  Receive Date: 20101223
  Receipt Date: 20101012
  Transmission Date: 20110411
  Serious: No
  Sender: FDA-Public Use
  Company Number: US-AMGEN-KDL436674

PATIENT

DRUGS (2)
  1. ENBREL [Suspect]
     Indication: PSORIATIC ARTHROPATHY
     Dosage: 50 MG, 2 TIMES/WK
     Route: 058
     Dates: start: 20050925
  2. ENBREL [Suspect]
     Indication: PSORIASIS
     Dosage: UNK UNK, UNK
     Dates: start: 20100916

REACTIONS (6)
  - ACNE [None]
  - APHTHOUS STOMATITIS [None]
  - EAR INFECTION [None]
  - INFECTION [None]
  - PAIN IN JAW [None]
  - TYMPANIC MEMBRANE PERFORATION [None]
